FAERS Safety Report 8957518 (Version 1)
Quarter: 2012Q4

REPORT INFORMATION
  Report Type: 
  Country: SE (occurrence: SE)
  Receive Date: 20121211
  Receipt Date: 20121211
  Transmission Date: 20130627
  Serious: Yes (Hospitalization)
  Sender: FDA-Public Use
  Company Number: SE-B.I. PHARMACEUTICALS,INC./RIDGEFIELD-2012-SW-00901SW

PATIENT
  Sex: Male

DRUGS (2)
  1. SIFROL TAB [Suspect]
  2. OXASCAND [Concomitant]

REACTIONS (2)
  - Petit mal epilepsy [Unknown]
  - Hallucination [Unknown]
